FAERS Safety Report 18262613 (Version 1)
Quarter: 2020Q3

REPORT INFORMATION
  Report Type: Spontaneous
  Country: US (occurrence: US)
  Receive Date: 20200911
  Receipt Date: 20200911
  Transmission Date: 20201103
  Serious: Yes (Other)
  Sender: FDA-Public Use
  Company Number: None

PATIENT
  Age: 70 Year
  Sex: Male

DRUGS (19)
  1. SILDENAFIL. [Concomitant]
     Active Substance: SILDENAFIL
  2. DULOXETINE. [Concomitant]
     Active Substance: DULOXETINE
  3. AMIODARONE [Concomitant]
     Active Substance: AMIODARONE
  4. ALLOPURINOL. [Concomitant]
     Active Substance: ALLOPURINOL
  5. ATORVASTATIN [Concomitant]
     Active Substance: ATORVASTATIN
  6. OPSUMIT [Suspect]
     Active Substance: MACITENTAN
     Indication: PULMONARY ARTERIAL HYPERTENSION
     Route: 048
     Dates: start: 201606
  7. REMODULIN [Concomitant]
     Active Substance: TREPROSTINIL
  8. GABAPENTIN. [Concomitant]
     Active Substance: GABAPENTIN
  9. OPSUMIT [Suspect]
     Active Substance: MACITENTAN
     Indication: CONNECTIVE TISSUE DISORDER
     Route: 048
     Dates: start: 201606
  10. ASPIRIN. [Concomitant]
     Active Substance: ASPIRIN
  11. TRAZODONE [Concomitant]
     Active Substance: TRAZODONE HYDROCHLORIDE
  12. SPIRIVIA RESPIMAT [Concomitant]
  13. ELIQUIS [Concomitant]
     Active Substance: APIXABAN
  14. PREDNISONE. [Concomitant]
     Active Substance: PREDNISONE
  15. OXYCODONE [Concomitant]
     Active Substance: OXYCODONE
  16. ATOVAQUONE. [Concomitant]
     Active Substance: ATOVAQUONE
  17. NORCO [Concomitant]
     Active Substance: ACETAMINOPHEN\HYDROCODONE BITARTRATE
  18. ALBUTEROL HFA [Concomitant]
     Active Substance: ALBUTEROL SULFATE
  19. TORSEMIDE. [Concomitant]
     Active Substance: TORSEMIDE

REACTIONS (3)
  - Dyspnoea [None]
  - Diarrhoea [None]
  - Faeces discoloured [None]

NARRATIVE: CASE EVENT DATE: 20200902
